FAERS Safety Report 8042074-5 (Version None)
Quarter: 2011Q4

REPORT INFORMATION
  Report Type: 
  Country: None (occurrence: None)
  Receive Date: 20111207
  Receipt Date: 20110101
  Transmission Date: 20120403
  Serious: Yes (Other)
  Sender: FDA-Public Use
  Company Number: SYN-0220-2011

PATIENT
  Sex: Male
  Weight: 54.42 kg

DRUGS (2)
  1. ATARAX [Suspect]
     Indication: ECZEMA
     Dosage: 5.0 MG, EVENING, P.O.
     Route: 048
     Dates: start: 20110818, end: 20110828
  2. LEVOCETIRIZINE DIHYDROCHLORIDE [Suspect]
     Indication: ECZEMA
     Dosage: 5.0 MG, Q.D., P.O.
     Route: 048
     Dates: start: 20110818, end: 20110828

REACTIONS (3)
  - SKIN DISCOLOURATION [None]
  - LOSS OF CONSCIOUSNESS [None]
  - CONVULSION [None]
